FAERS Safety Report 24533728 (Version 1)
Quarter: 2024Q4

REPORT INFORMATION
  Report Type: Spontaneous
  Country: AU (occurrence: AU)
  Receive Date: 20241022
  Receipt Date: 20241022
  Transmission Date: 20250115
  Serious: Yes (Other)
  Sender: OTSUKA
  Company Number: AU-LUNDBECK-DKLU4005431

PATIENT

DRUGS (2)
  1. ABILIFY MAINTENA [Suspect]
     Active Substance: ARIPIPRAZOLE
     Indication: Product used for unknown indication
     Dosage: 300 INTERNATIONAL UNIT
     Route: 065
  2. ARIPIPRAZOLE [Concomitant]
     Active Substance: ARIPIPRAZOLE
     Indication: Product used for unknown indication
     Dosage: 15 MILLIGRAM
     Route: 048

REACTIONS (8)
  - Self-destructive behaviour [Unknown]
  - Screaming [Unknown]
  - Condition aggravated [Unknown]
  - Nervousness [Unknown]
  - Anger [Unknown]
  - Hallucination [Unknown]
  - Depressed mood [Unknown]
  - Chest pain [Unknown]
